FAERS Safety Report 10241240 (Version 2)
Quarter: 2014Q3

REPORT INFORMATION
  Report Type: Spontaneous
  Country: FR (occurrence: FR)
  Receive Date: 20140617
  Receipt Date: 20140707
  Transmission Date: 20150326
  Serious: Yes (Hospitalization, Other)
  Sender: FDA-Public Use
  Company Number: FR-PFIZER INC-2014164855

PATIENT
  Age: 77 Year
  Sex: Male

DRUGS (12)
  1. AMIODARONE HCL [Suspect]
     Active Substance: AMIODARONE HYDROCHLORIDE
     Dosage: 200 MG, 6 TIMES A WEEK
     Route: 048
  2. ISOPTIN [Suspect]
     Active Substance: VERAPAMIL HYDROCHLORIDE
     Dosage: 40 MG, DAILY
     Route: 048
  3. DIFFU K [Concomitant]
     Active Substance: POTASSIUM CHLORIDE
     Dosage: UNK
  4. CLOPIDOGREL [Concomitant]
     Active Substance: CLOPIDOGREL BISULFATE
     Dosage: UNK
  5. FUROSEMIDE. [Suspect]
     Active Substance: FUROSEMIDE
     Dosage: 40 MG, DAILY
     Route: 048
  6. DOLIPRANE [Concomitant]
     Active Substance: ACETAMINOPHEN
     Dosage: UNK
  7. VICTAN [Suspect]
     Active Substance: ETHYL LOFLAZEPATE
     Dosage: 0.5 DF (2.5 (UNIT UNSPECIFIED)), DAILY
     Route: 048
  8. PNEUMOREL [Suspect]
     Active Substance: FENSPIRIDE HYDROCHLORIDE
     Dosage: 1 DF, 3X/DAY
     Route: 048
  9. TUSSIDANE [Suspect]
     Active Substance: DEXTROMETHORPHAN HYDROBROMIDE
     Dosage: 1 DF, 3X/DAY
     Route: 048
  10. ZOLPIDEM TARTRATE. [Suspect]
     Active Substance: ZOLPIDEM TARTRATE
     Dosage: 2 UNIT ONCE
     Route: 048
  11. INEXIUM [Concomitant]
     Active Substance: ESOMEPRAZOLE
     Dosage: UNK
  12. PERMIXON [Concomitant]
     Active Substance: SAW PALMETTO
     Dosage: UNK

REACTIONS (5)
  - Fall [Recovering/Resolving]
  - Monocyte count decreased [Unknown]
  - Extra dose administered [Unknown]
  - Joint dislocation [Recovering/Resolving]
  - Haemoglobin decreased [Unknown]
